FAERS Safety Report 25935193 (Version 1)
Quarter: 2025Q4

REPORT INFORMATION
  Report Type: Spontaneous
  Country: PR (occurrence: None)
  Receive Date: 20251016
  Receipt Date: 20251016
  Transmission Date: 20260118
  Serious: Yes (Other)
  Sender: FDA-CTU
  Company Number: None

PATIENT
  Age: 51 Year
  Sex: Female
  Weight: 58.5 kg

DRUGS (2)
  1. CORTICOTROPIN [Suspect]
     Active Substance: CORTICOTROPIN
     Dates: start: 20251013
  2. CORTICOTROPIN [Concomitant]
     Active Substance: CORTICOTROPIN
     Dates: start: 20251013

REACTIONS (5)
  - Insomnia [None]
  - Myalgia [None]
  - Headache [None]
  - Injection site pain [None]
  - Irritability [None]

NARRATIVE: CASE EVENT DATE: 20251016
